FAERS Safety Report 12597492 (Version 2)
Quarter: 2016Q3

REPORT INFORMATION
  Report Type: Spontaneous
  Country: US (occurrence: US)
  Receive Date: 20160727
  Receipt Date: 20160830
  Transmission Date: 20161109
  Serious: No
  Sender: FDA-Public Use
  Company Number: US-PFIZER INC-2016342999

PATIENT
  Age: 71 Year
  Sex: Female

DRUGS (7)
  1. ASPIRIN. [Concomitant]
     Active Substance: ASPIRIN
     Dosage: UNK
  2. BYETTA [Concomitant]
     Active Substance: EXENATIDE
     Dosage: 10 UG, UNK
  3. HYDROXYZINE HCL [Concomitant]
     Active Substance: HYDROXYZINE HYDROCHLORIDE
     Dosage: UNK
  4. ZOCOR [Concomitant]
     Active Substance: SIMVASTATIN
     Dosage: UNK
  5. IBRANCE [Suspect]
     Active Substance: PALBOCICLIB
     Indication: BREAST CANCER FEMALE
     Dosage: 75 MG, CYCLIC (DAILY X 21 DAYS)
     Dates: start: 20160629
  6. BUPROPION HCL ER [Concomitant]
     Active Substance: BUPROPION HYDROCHLORIDE
     Dosage: UNK
  7. LANTUS [Concomitant]
     Active Substance: INSULIN GLARGINE
     Dosage: UNK

REACTIONS (7)
  - Product use issue [Unknown]
  - Cough [Unknown]
  - Red blood cell count decreased [Unknown]
  - White blood cell count decreased [Unknown]
  - Platelet count decreased [Unknown]
  - Nausea [Not Recovered/Not Resolved]
  - Anxiety [Not Recovered/Not Resolved]
